FAERS Safety Report 9354142 (Version 2)
Quarter: 2013Q3

REPORT INFORMATION
  Report Type: Report from Study
  Country: UG (occurrence: UG)
  Receive Date: 20130618
  Receipt Date: 20130705
  Transmission Date: 20140515
  Serious: Yes (Death)
  Sender: FDA-Public Use
  Company Number: UG-ABBOTT-13P-165-1104997-00

PATIENT
  Age: 42 Year
  Sex: Male

DRUGS (3)
  1. ALUVIA [Suspect]
     Indication: HIV INFECTION
     Route: 048
     Dates: start: 20100624, end: 20130315
  2. TENOFOVIR [Concomitant]
     Indication: HIV INFECTION
     Dates: start: 20100624, end: 20130315
  3. LAMIVUDINE [Concomitant]
     Indication: HIV INFECTION
     Dates: start: 20100624, end: 20130315

REACTIONS (1)
  - Death [Fatal]
